FAERS Safety Report 6032534-0 (Version None)
Quarter: 2009Q1

REPORT INFORMATION
  Report Type: 
  Country: None (occurrence: None)
  Receive Date: 20090109
  Receipt Date: 20081202
  Transmission Date: 20090719
  Serious: No
  Sender: FDA-Public Use
  Company Number: A0758721A

PATIENT
  Age: 54 Year
  Sex: Female

DRUGS (14)
  1. TYKERB [Suspect]
     Indication: BREAST CANCER
     Dosage: 5TAB PER DAY
     Route: 048
     Dates: start: 20080907
  2. HERCEPTIN [Concomitant]
  3. VITAMIN D CALCIUM [Concomitant]
  4. LOTREL [Concomitant]
  5. MVI WITH IRON [Concomitant]
  6. LIPITOR [Concomitant]
  7. ACIPHEX [Concomitant]
  8. FEMARA [Concomitant]
  9. NASACORT [Concomitant]
     Route: 045
  10. ADVAIR DISKUS 250/50 [Concomitant]
     Route: 055
  11. PROVENTIL [Concomitant]
  12. TYLENOL (CAPLET) [Concomitant]
  13. ADVIL LIQUI-GELS [Concomitant]
  14. BENADRYL [Concomitant]

REACTIONS (2)
  - PRURITUS [None]
  - THERAPEUTIC RESPONSE UNEXPECTED [None]
